FAERS Safety Report 9093986 (Version 1)
Quarter: 2013Q1

REPORT INFORMATION
  Report Type: Spontaneous
  Country: DE (occurrence: DE)
  Receive Date: 20130201
  Receipt Date: 20130201
  Transmission Date: 20140127
  Serious: Yes (Other)
  Sender: FDA-Public Use
  Company Number: DE-ROCHE-1185759

PATIENT
  Age: 69 Year
  Sex: Male
  Weight: 88 kg

DRUGS (2)
  1. LARIAM [Suspect]
     Indication: MALARIA PROPHYLAXIS
     Route: 048
     Dates: start: 20121117, end: 201212
  2. LARIAM [Suspect]
     Route: 048
     Dates: start: 201212, end: 20130102

REACTIONS (2)
  - Vertigo [Recovered/Resolved]
  - Gait disturbance [Recovered/Resolved]
